FAERS Safety Report 25463187 (Version 1)
Quarter: 2025Q2

REPORT INFORMATION
  Report Type: Spontaneous
  Country: FR (occurrence: FR)
  Receive Date: 20250620
  Receipt Date: 20250620
  Transmission Date: 20250717
  Serious: Yes (Other)
  Sender: ETHYPHARM
  Company Number: FR-ETHYPHARM-2025000222

PATIENT
  Sex: Male

DRUGS (1)
  1. MORPHINE SULFATE [Suspect]
     Active Substance: MORPHINE SULFATE
     Indication: Pain
     Dates: start: 20250118

REACTIONS (3)
  - Suspected product quality issue [Unknown]
  - Drug diversion [Unknown]
  - Dependence [Unknown]
